FAERS Safety Report 9027125 (Version 4)
Quarter: 2013Q2

REPORT INFORMATION
  Report Type: Spontaneous
  Country: US (occurrence: US)
  Receive Date: 20130123
  Receipt Date: 20130513
  Transmission Date: 20140414
  Serious: Yes (Hospitalization)
  Sender: FDA-Public Use
  Company Number: US-B.I. PHARMACEUTICALS,INC./RIDGEFIELD-2013-BI-01366BP

PATIENT
  Age: 65 Year
  Sex: Female

DRUGS (3)
  1. SPIRIVA [Suspect]
     Indication: EMPHYSEMA
     Dosage: 18 MCG
     Route: 055
     Dates: start: 2007
  2. SPIRIVA [Suspect]
     Indication: CHRONIC OBSTRUCTIVE PULMONARY DISEASE
  3. PROAIR [Concomitant]
     Indication: EMPHYSEMA
     Route: 055

REACTIONS (9)
  - Spinal column stenosis [Not Recovered/Not Resolved]
  - Sciatica [Not Recovered/Not Resolved]
  - Sciatica [Not Recovered/Not Resolved]
  - Dyspnoea [Not Recovered/Not Resolved]
  - Back pain [Recovered/Resolved]
  - Pain in extremity [Not Recovered/Not Resolved]
  - Dyspnoea [Not Recovered/Not Resolved]
  - Product quality issue [Not Recovered/Not Resolved]
  - Product quality issue [Not Recovered/Not Resolved]
